FAERS Safety Report 16148402 (Version 1)
Quarter: 2019Q2

REPORT INFORMATION
  Report Type: Spontaneous
  Country: US (occurrence: US)
  Receive Date: 20190402
  Receipt Date: 20190402
  Transmission Date: 20190711
  Serious: No
  Sender: FDA-Public Use
  Company Number: US-009507513-1904USA000387

PATIENT
  Age: 52 Year
  Sex: Male

DRUGS (9)
  1. RIFAMPIN. [Concomitant]
     Active Substance: RIFAMPIN
     Indication: EXTRADURAL ABSCESS
  2. CUBICIN [Suspect]
     Active Substance: DAPTOMYCIN
     Indication: EXTRADURAL ABSCESS
  3. ASPIRIN. [Concomitant]
     Active Substance: ASPIRIN
     Dosage: 81 MILLIGRAM, QD
  4. METFORMIN [Concomitant]
     Active Substance: METFORMIN HYDROCHLORIDE
     Dosage: 500 MILLIGRAM, BID
  5. NAPROXEN. [Concomitant]
     Active Substance: NAPROXEN
     Dosage: 500 MILLIGRAM, BID
  6. OXACILLIN SODIUM [Concomitant]
     Active Substance: OXACILLIN SODIUM
     Indication: EXTRADURAL ABSCESS
  7. CYCLOBENZAPRINE HYDROCHLORIDE. [Concomitant]
     Active Substance: CYCLOBENZAPRINE HYDROCHLORIDE
     Dosage: 10 MILLIGRAM, TID
  8. CEFEPIME [Concomitant]
     Active Substance: CEFEPIME HYDROCHLORIDE
     Indication: EXTRADURAL ABSCESS
  9. VANCOMYCIN [Concomitant]
     Active Substance: VANCOMYCIN
     Indication: EXTRADURAL ABSCESS

REACTIONS (1)
  - Product use in unapproved indication [Unknown]
